FAERS Safety Report 11319102 (Version 1)
Quarter: 2015Q3

REPORT INFORMATION
  Report Type: Spontaneous
  Country: US (occurrence: None)
  Receive Date: 20150727
  Receipt Date: 20150727
  Transmission Date: 20151125
  Serious: Yes (Life-Threatening)
  Sender: FDA-Public Use
  Company Number: None

PATIENT
  Age: 43 Year
  Sex: Female
  Weight: 77.11 kg

DRUGS (3)
  1. BACTRIM DS [Suspect]
     Active Substance: SULFAMETHOXAZOLE\TRIMETHOPRIM
     Indication: SINUSITIS
     Dosage: ONE PILL BID
     Dates: start: 20150629, end: 20150708
  2. PREDNISONE. [Concomitant]
     Active Substance: PREDNISONE
  3. XYZAL [Concomitant]
     Active Substance: LEVOCETIRIZINE DIHYDROCHLORIDE

REACTIONS (6)
  - Oxygen saturation decreased [None]
  - Dyspnoea [None]
  - Hypopnoea [None]
  - Fatigue [None]
  - Urticaria [None]
  - Urinary incontinence [None]

NARRATIVE: CASE EVENT DATE: 20150629
